FAERS Safety Report 16405907 (Version 1)
Quarter: 2019Q2

REPORT INFORMATION
  Report Type: Spontaneous
  Country: FR (occurrence: FR)
  Receive Date: 20190607
  Receipt Date: 20190607
  Transmission Date: 20190711
  Serious: Yes (Death, Hospitalization)
  Sender: FDA-Public Use
  Company Number: FR-SA-2019SA153171

PATIENT
  Age: 63 Year
  Sex: Female
  Weight: 73 kg

DRUGS (4)
  1. OXAZEPAM. [Suspect]
     Active Substance: OXAZEPAM
     Indication: SUICIDE ATTEMPT
     Dosage: 100 DF, TOTAL
     Route: 048
     Dates: start: 20180527, end: 20180527
  2. NOZINAN [Suspect]
     Active Substance: LEVOMEPROMAZINE
     Indication: SUICIDE ATTEMPT
     Dosage: 30 ML, TOTAL
     Route: 048
     Dates: start: 20180527, end: 20180527
  3. ZOLPIDEM TARTRATE. [Suspect]
     Active Substance: ZOLPIDEM TARTRATE
     Indication: SUICIDE ATTEMPT
     Dosage: 140 MG, TOTAL
     Route: 048
     Dates: start: 20180527, end: 20180527
  4. LOXAPAC [LOXAPINE SUCCINATE] [Suspect]
     Active Substance: LOXAPINE SUCCINATE
     Indication: SUICIDE ATTEMPT
     Dosage: 1 UNK, TOTAL
     Route: 048
     Dates: start: 20180527, end: 20180527

REACTIONS (2)
  - Cardio-respiratory arrest [Fatal]
  - Toxicity to various agents [Fatal]

NARRATIVE: CASE EVENT DATE: 20180527
